FAERS Safety Report 16463673 (Version 1)
Quarter: 2019Q2

REPORT INFORMATION
  Report Type: Spontaneous
  Country: JP (occurrence: JP)
  Receive Date: 20190621
  Receipt Date: 20190621
  Transmission Date: 20190711
  Serious: Yes (Life-Threatening, Hospitalization)
  Sender: FDA-Public Use
  Company Number: JP-BAYER-2019-075362

PATIENT
  Age: 59 Year
  Sex: Female
  Weight: 42.1 kg

DRUGS (9)
  1. FOLIAMIN [Concomitant]
     Active Substance: FOLIC ACID
     Indication: RHEUMATOID ARTHRITIS
     Dosage: 1 (UNITS NOT REPORTED), WEEKLY
     Route: 048
  2. GADOVIST [Suspect]
     Active Substance: GADOBUTROL
     Indication: NUCLEAR MAGNETIC RESONANCE IMAGING SPINAL
     Dosage: 5 ML, ONCE
     Route: 042
     Dates: start: 20190411, end: 20190411
  3. METHOTREXATE. [Concomitant]
     Active Substance: METHOTREXATE
     Indication: RHEUMATOID ARTHRITIS
     Dosage: 4 (UNITS NOT REPORTED), WEEKLY
     Route: 048
  4. GADOVIST [Suspect]
     Active Substance: GADOBUTROL
     Indication: MYELITIS
  5. REBAMIPIDE [Concomitant]
     Active Substance: REBAMIPIDE
     Indication: RHEUMATOID ARTHRITIS
     Dosage: 1 (UNITS NOT REPORTED), DAILY
     Route: 048
  6. LORATADINE. [Concomitant]
     Active Substance: LORATADINE
     Indication: RHEUMATOID ARTHRITIS
     Dosage: 1 (UNITS NOT REPORTED), DAILY
     Route: 048
  7. LOXOPROFEN [Concomitant]
     Active Substance: LOXOPROFEN
     Indication: RHEUMATOID ARTHRITIS
     Dosage: 1 (UNITS NOT REPORTED), DAILY
     Route: 048
  8. SIMVASTATIN. [Concomitant]
     Active Substance: SIMVASTATIN
     Indication: RHEUMATOID ARTHRITIS
     Dosage: 1 (UNITS NOT REPORTED), DAILY
     Route: 048
  9. BUCILLAMINE [Concomitant]
     Active Substance: BUCILLAMINE
     Indication: RHEUMATOID ARTHRITIS
     Dosage: 3 (UNITS NOT REPORTED), DAILY
     Route: 048

REACTIONS (11)
  - Anaphylactic shock [Recovered/Resolved]
  - Acute respiratory distress syndrome [None]
  - Pulmonary oedema [Recovered/Resolved]
  - Physical deconditioning [Recovered/Resolved]
  - Dyspnoea [Recovered/Resolved]
  - PO2 decreased [Recovered/Resolved]
  - Rales [Recovered/Resolved]
  - Feeling cold [Recovered/Resolved]
  - Nausea [Recovered/Resolved]
  - Oxygen saturation decreased [Recovered/Resolved]
  - Dehydration [Recovered/Resolved]

NARRATIVE: CASE EVENT DATE: 20190411
